FAERS Safety Report 13332750 (Version 1)
Quarter: 2017Q1

REPORT INFORMATION
  Report Type: Spontaneous
  Country: US (occurrence: US)
  Receive Date: 20170314
  Receipt Date: 20170314
  Transmission Date: 20170428
  Serious: Yes (Hospitalization)
  Sender: FDA-Public Use
  Company Number: None

PATIENT
  Age: 64 Year
  Sex: Female

DRUGS (1)
  1. BENLYSTA [Suspect]
     Active Substance: BELIMUMAB
     Indication: SYSTEMIC LUPUS ERYTHEMATOSUS
     Dosage: 820MG EVERY 4 WEEKS INTRAVENOUSLY
     Route: 042
     Dates: start: 20160914

REACTIONS (2)
  - Infection [None]
  - Influenza [None]

NARRATIVE: CASE EVENT DATE: 201702
